FAERS Safety Report 23632526 (Version 1)
Quarter: 2024Q1

REPORT INFORMATION
  Report Type: Spontaneous
  Country: US (occurrence: US)
  Receive Date: 20240314
  Receipt Date: 20240314
  Transmission Date: 20240410
  Serious: No
  Sender: FDA-Public Use
  Company Number: US-PFIZER INC-2020080018

PATIENT
  Age: 10 Year
  Sex: Female

DRUGS (9)
  1. XELJANZ [Suspect]
     Active Substance: TOFACITINIB CITRATE
     Indication: Still^s disease
     Dosage: 2.5 MG, 2X/DAY (HALF IN THE MORNING AND HALF AT NIGHT)
     Route: 048
     Dates: start: 201910
  2. XELJANZ [Suspect]
     Active Substance: TOFACITINIB CITRATE
     Indication: Juvenile idiopathic arthritis
     Dosage: 5 MG
  3. XELJANZ [Suspect]
     Active Substance: TOFACITINIB CITRATE
     Dosage: 2.5 MG, 2X/DAY
     Route: 048
  4. XELJANZ [Suspect]
     Active Substance: TOFACITINIB CITRATE
     Dosage: UNK, 2X/DAY (1 TABLET IN THE MORNING AND A HALF TABLET IN THE EVENING)
     Route: 048
  5. XELJANZ [Suspect]
     Active Substance: TOFACITINIB CITRATE
     Dosage: 2.5 MG, 2X/DAY ((ONE TABLET EVERY MORNING AND ONE-HALF TABLET EVERY EVENING)
  6. XELJANZ [Suspect]
     Active Substance: TOFACITINIB CITRATE
     Dosage: 7.5 MG, DAILY (5 MG TABLETS ONCE EVERY MORNING AND A HALF A TABLET EVERY EVENING)
     Route: 048
  7. XELJANZ [Suspect]
     Active Substance: TOFACITINIB CITRATE
     Dosage: 5 MG, 2X/DAY
     Route: 048
  8. XELJANZ [Suspect]
     Active Substance: TOFACITINIB CITRATE
     Dosage: 7.5 MG DAILY, (5 MG EVERY MORNING AND 2.5 MG (0.5 TABS) EVERY EVENING)
     Route: 048
  9. XELJANZ [Suspect]
     Active Substance: TOFACITINIB CITRATE
     Dosage: 5 MG, 2X/DAY, EVERY MORNING AND EVERY EVENING
     Route: 048

REACTIONS (7)
  - Pain [Unknown]
  - Joint swelling [Unknown]
  - C-reactive protein increased [Unknown]
  - Red blood cell sedimentation rate increased [Unknown]
  - Arthralgia [Unknown]
  - Off label use [Unknown]
  - Off label use [Unknown]
